FAERS Safety Report 9163831 (Version 1)
Quarter: 2013Q1

REPORT INFORMATION
  Report Type: Spontaneous
  Country: US (occurrence: US)
  Receive Date: 20130314
  Receipt Date: 20130314
  Transmission Date: 20140127
  Serious: Yes (Death)
  Sender: FDA-Public Use
  Company Number: US-ELI_LILLY_AND_COMPANY-US201303003946

PATIENT
  Age: 47 Year
  Sex: Female

DRUGS (2)
  1. EFFIENT [Suspect]
     Indication: STENT PLACEMENT
     Dosage: 60 MG, SINGLE LOADING DOSE
     Route: 048
     Dates: start: 20130309, end: 20130309
  2. ANGIOMAX [Concomitant]

REACTIONS (2)
  - Cardiogenic shock [Fatal]
  - Thrombosis in device [Fatal]
